FAERS Safety Report 9298912 (Version 1)
Quarter: 2013Q2

REPORT INFORMATION
  Report Type: Spontaneous
  Country: US (occurrence: US)
  Receive Date: 20130520
  Receipt Date: 20130520
  Transmission Date: 20140414
  Serious: No
  Sender: FDA-Public Use
  Company Number: US-SANOFI-AVENTIS-2012SA060870

PATIENT
  Sex: Female
  Weight: 111.58 kg

DRUGS (2)
  1. APIDRA [Suspect]
     Route: 058
  2. ANTIDEPRESSANTS [Concomitant]

REACTIONS (1)
  - Decreased appetite [Unknown]
